FAERS Safety Report 5893373-4 (Version None)
Quarter: 2008Q3

REPORT INFORMATION
  Report Type: 
  Country: None (occurrence: None)
  Receive Date: 20080923
  Receipt Date: 20080912
  Transmission Date: 20090109
  Serious: Yes (Death, Other)
  Sender: FDA-Public Use
  Company Number: JP-MERCK-0809USA02053

PATIENT
  Age: 10 Year
  Sex: Male

DRUGS (4)
  1. DECADRON SRC [Suspect]
     Indication: ANAPLASTIC LARGE CELL LYMPHOMA T- AND NULL-CELL TYPES
     Route: 048
  2. CYTARABINE [Suspect]
     Route: 065
  3. VINDESINE [Suspect]
     Route: 065
  4. ETOPOSIDE [Suspect]
     Route: 065

REACTIONS (4)
  - DISSEMINATED INTRAVASCULAR COAGULATION [None]
  - DRUG INEFFECTIVE [None]
  - MULTI-ORGAN FAILURE [None]
  - SEPSIS [None]
